FAERS Safety Report 7345180-3 (Version None)
Quarter: 2011Q1

REPORT INFORMATION
  Report Type: 
  Country: None (occurrence: None)
  Receive Date: 20110310
  Receipt Date: 20110302
  Transmission Date: 20110831
  Serious: Yes (Disabling)
  Sender: FDA-Public Use
  Company Number: GB-BAXTER-2011BH005682

PATIENT
  Age: 46 Year
  Sex: Female
  Weight: 83 kg

DRUGS (27)
  1. SODIUM CHLORIDE 0.9% IN PLASTIC CONTAINER [Suspect]
     Route: 042
     Dates: start: 20101215, end: 20101215
  2. SODIUM CHLORIDE 0.9% IN PLASTIC CONTAINER [Suspect]
     Route: 042
     Dates: start: 20110202, end: 20110202
  3. SODIUM CHLORIDE 0.9% IN PLASTIC CONTAINER [Suspect]
     Route: 042
     Dates: start: 20110223, end: 20110223
  4. SODIUM CHLORIDE 0.9% IN PLASTIC CONTAINER [Suspect]
     Indication: PRODUCT USED FOR UNKNOWN INDICATION
     Route: 042
     Dates: start: 20101208
  5. PACLITAXEL [Suspect]
     Indication: BREAST CANCER
     Route: 042
     Dates: start: 20101208, end: 20101208
  6. PACLITAXEL [Suspect]
     Route: 042
     Dates: start: 20101215, end: 20101215
  7. PACLITAXEL [Suspect]
     Route: 042
     Dates: start: 20110120, end: 20110120
  8. PACLITAXEL [Suspect]
     Route: 042
     Dates: start: 20110202, end: 20110202
  9. SODIUM CHLORIDE 0.9% IN PLASTIC CONTAINER [Suspect]
     Indication: BREAST CANCER
     Route: 042
     Dates: start: 20101208, end: 20101208
  10. SODIUM CHLORIDE 0.9% IN PLASTIC CONTAINER [Suspect]
     Route: 042
  11. SODIUM CHLORIDE 0.9% IN PLASTIC CONTAINER [Suspect]
     Route: 042
     Dates: start: 20110120, end: 20110120
  12. SODIUM CHLORIDE 0.9% IN PLASTIC CONTAINER [Suspect]
     Route: 042
     Dates: start: 20110215, end: 20110215
  13. PACLITAXEL [Suspect]
     Route: 042
     Dates: start: 20110105, end: 20110105
  14. DEXAMETHASONE [Suspect]
     Indication: PRODUCT USED FOR UNKNOWN INDICATION
     Route: 042
     Dates: start: 20101208
  15. PACLITAXEL [Suspect]
     Route: 042
     Dates: start: 20101222, end: 20101222
  16. ALOXI [Suspect]
     Indication: PRODUCT USED FOR UNKNOWN INDICATION
     Route: 042
     Dates: start: 20101208
  17. CHLORPHENAMINE [Suspect]
     Indication: PRODUCT USED FOR UNKNOWN INDICATION
     Route: 042
     Dates: start: 20101208
  18. PACLITAXEL [Suspect]
     Route: 042
     Dates: start: 20110223, end: 20110223
  19. PACLITAXEL [Suspect]
     Route: 042
     Dates: start: 20110215, end: 20110215
  20. PACLITAXEL [Suspect]
     Route: 042
     Dates: start: 20110119, end: 20110119
  21. RANITIDINE [Suspect]
     Indication: PRODUCT USED FOR UNKNOWN INDICATION
     Route: 042
     Dates: start: 20101208
  22. SODIUM CHLORIDE 0.9% IN PLASTIC CONTAINER [Suspect]
     Route: 042
     Dates: start: 20110119, end: 20110119
  23. PACLITAXEL [Suspect]
     Route: 042
     Dates: start: 20110112, end: 20110112
  24. SODIUM CHLORIDE 0.9% IN PLASTIC CONTAINER [Suspect]
     Route: 042
     Dates: start: 20101222, end: 20101222
  25. SODIUM CHLORIDE 0.9% IN PLASTIC CONTAINER [Suspect]
     Route: 042
     Dates: start: 20101229, end: 20101229
  26. SODIUM CHLORIDE 0.9% IN PLASTIC CONTAINER [Suspect]
     Route: 042
     Dates: start: 20110105, end: 20110105
  27. PACLITAXEL [Suspect]
     Route: 042
     Dates: start: 20101229, end: 20101229

REACTIONS (1)
  - NEUROPATHY PERIPHERAL [None]
